FAERS Safety Report 9400283 (Version 2)
Quarter: 2013Q4

REPORT INFORMATION
  Report Type: Report from Study
  Country: CA (occurrence: CA)
  Receive Date: 20130715
  Receipt Date: 20131108
  Transmission Date: 20140711
  Serious: Yes (Hospitalization)
  Sender: FDA-Public Use
  Company Number: CA-JNJFOC-20130705485

PATIENT
  Age: 31 Year
  Sex: Male
  Weight: 100 kg

DRUGS (6)
  1. REMICADE [Suspect]
     Indication: CROHN^S DISEASE
     Dosage: 12TH INFUSION
     Route: 042
     Dates: start: 20130720
  2. REMICADE [Suspect]
     Indication: CROHN^S DISEASE
     Dosage: 11TH INFUSION
     Route: 042
     Dates: start: 20130608
  3. REMICADE [Suspect]
     Indication: CROHN^S DISEASE
     Route: 042
     Dates: start: 20111116
  4. STEROIDS NOS [Concomitant]
     Route: 061
  5. TYLENOL [Concomitant]
     Dosage: AS POSSIBLE.
     Route: 065
  6. MORPHINE [Concomitant]
     Dosage: AS POSSIBLE
     Route: 065

REACTIONS (5)
  - Local swelling [Recovering/Resolving]
  - Erythema [Recovering/Resolving]
  - Gait disturbance [Recovering/Resolving]
  - Fistula [Unknown]
  - Sweat gland disorder [Unknown]
